FAERS Safety Report 7702769-7 (Version None)
Quarter: 2011Q3

REPORT INFORMATION
  Report Type: 
  Country: None (occurrence: None)
  Receive Date: 20110823
  Receipt Date: 20110812
  Transmission Date: 20111222
  Serious: Yes (Life-Threatening, Other)
  Sender: FDA-Public Use
  Company Number: US-BAYER-200943908NA

PATIENT
  Age: 48 Year
  Sex: Female
  Weight: 97.506 kg

DRUGS (5)
  1. NEXIUM [Concomitant]
     Dosage: 40 MG, UNK
  2. YAZ [Suspect]
     Dosage: UNK
     Dates: start: 20070101, end: 20080101
  3. ALPRAZOLAM [Concomitant]
     Dosage: 0.5 MG, UNK
  4. YASMIN [Suspect]
     Dosage: UNK
     Dates: start: 20020101, end: 20030101
  5. LEVOXYL [Concomitant]
     Dosage: 50 UNK, UNK

REACTIONS (4)
  - CHOLELITHIASIS [None]
  - ORGAN FAILURE [None]
  - GALLBLADDER NON-FUNCTIONING [None]
  - CHOLECYSTITIS CHRONIC [None]
